FAERS Safety Report 9390098 (Version 1)
Quarter: 2013Q3

REPORT INFORMATION
  Report Type: Spontaneous
  Country: US (occurrence: US)
  Receive Date: 20130708
  Receipt Date: 20130708
  Transmission Date: 20140515
  Serious: No
  Sender: FDA-Public Use
  Company Number: US-AMGEN-USASP2013046307

PATIENT
  Age: 66 Year
  Sex: Male

DRUGS (2)
  1. ENBREL [Suspect]
     Indication: RHEUMATOID ARTHRITIS
     Dosage: 50 MG, QWK
     Route: 065
     Dates: start: 20090604, end: 20130607
  2. METHOTREXATE [Concomitant]
     Dosage: UNK MG, QWK

REACTIONS (2)
  - Joint stiffness [Recovered/Resolved]
  - Joint swelling [Recovered/Resolved]
